FAERS Safety Report 8983968 (Version 1)
Quarter: 2012Q4

REPORT INFORMATION
  Report Type: Spontaneous
  Country: US (occurrence: None)
  Receive Date: 20121218
  Receipt Date: 20121218
  Transmission Date: 20130627
  Serious: Yes (Disabling, Other)
  Sender: FDA-Public Use
  Company Number: None

PATIENT
  Age: 34 Year
  Sex: Female
  Weight: 48.99 kg

DRUGS (1)
  1. LEVOFLOXACIN [Suspect]
     Indication: SINUS INFECTION
     Dates: start: 20120806, end: 20120809

REACTIONS (5)
  - Tendonitis [None]
  - Tendonitis [None]
  - Gait disturbance [None]
  - Myalgia [None]
  - Muscle spasms [None]
